FAERS Safety Report 17939175 (Version 1)
Quarter: 2020Q2

REPORT INFORMATION
  Report Type: Spontaneous
  Country: GB (occurrence: GB)
  Receive Date: 20200625
  Receipt Date: 20200625
  Transmission Date: 20200714
  Serious: Yes (Disabling, Other)
  Sender: FDA-Public Use
  Company Number: GB-TEVA-2020-GB-1790666

PATIENT
  Age: 69 Year
  Sex: Male
  Weight: 92 kg

DRUGS (6)
  1. RAMIPRIL. [Concomitant]
     Active Substance: RAMIPRIL
  2. FUROSEMIDE SODIUM [Concomitant]
     Active Substance: FUROSEMIDE SODIUM
  3. APIXABAN [Concomitant]
     Active Substance: APIXABAN
  4. OFLOXACIN. [Suspect]
     Active Substance: OFLOXACIN
     Indication: SCROTAL INFECTION
     Dosage: 200 MG
     Route: 048
     Dates: start: 20200511, end: 20200522
  5. LATANOPROST. [Concomitant]
     Active Substance: LATANOPROST
  6. BISOPROLOL FUMARATE. [Concomitant]
     Active Substance: BISOPROLOL FUMARATE

REACTIONS (1)
  - Tendon pain [Not Recovered/Not Resolved]

NARRATIVE: CASE EVENT DATE: 20200522
